FAERS Safety Report 12408869 (Version 1)
Quarter: 2016Q2

REPORT INFORMATION
  Report Type: Report from Study
  Country: US (occurrence: US)
  Receive Date: 20160526
  Receipt Date: 20160526
  Transmission Date: 20160815
  Serious: Yes (Hospitalization, Other)
  Sender: FDA-Public Use
  Company Number: US-ABBVIE-16K-163-1594267-00

PATIENT
  Sex: Female
  Weight: 44.04 kg

DRUGS (2)
  1. HUMIRA [Suspect]
     Active Substance: ADALIMUMAB
     Route: 058
     Dates: start: 2014
  2. HUMIRA [Suspect]
     Active Substance: ADALIMUMAB
     Indication: CROHN^S DISEASE
     Route: 058
     Dates: start: 2013, end: 2014

REACTIONS (6)
  - Dizziness [Recovered/Resolved]
  - Fall [Recovered/Resolved]
  - Intestinal ulcer [Recovered/Resolved]
  - Hypokalaemia [Recovering/Resolving]
  - Drug ineffective [Recovered/Resolved]
  - Fractured coccyx [Recovering/Resolving]

NARRATIVE: CASE EVENT DATE: 2015
